FAERS Safety Report 6595521-X (Version None)
Quarter: 2010Q1

REPORT INFORMATION
  Report Type: 
  Country: None (occurrence: None)
  Receive Date: 20100223
  Receipt Date: 20100210
  Transmission Date: 20100710
  Serious: Yes (Hospitalization, Other)
  Sender: FDA-Public Use
  Company Number: FR-KINGPHARMUSA00001-K201000155

PATIENT
  Age: 56 Year
  Sex: Male

DRUGS (9)
  1. ALTACE [Suspect]
     Indication: HYPERTENSION
     Dosage: 2.5 MG, BID
     Route: 048
     Dates: start: 20000101
  2. AZATHIOPRINE [Suspect]
     Indication: COLITIS ULCERATIVE
     Dosage: 50 MG, BID
     Route: 048
     Dates: start: 20090801
  3. AZATHIOPRINE [Suspect]
     Dosage: 50 MG, TID
     Route: 048
     Dates: start: 20080401, end: 20090731
  4. ISCOVER [Suspect]
     Indication: CORONARY ARTERY DISEASE
     Dosage: 75 MG, QD
     Route: 048
     Dates: start: 20040101, end: 20090824
  5. BELOC ZOK [Suspect]
     Indication: HYPERTENSION
     Dosage: 95 MG, BID
     Route: 048
     Dates: start: 20000101
  6. VEROSPIRON [Suspect]
     Indication: HYPERTENSION
     Dosage: 25 MG, QD
     Route: 048
     Dates: start: 20030101
  7. SIMVASTATIN [Suspect]
     Indication: DYSLIPIDAEMIA
     Dosage: 20 MG, QD
     Route: 048
     Dates: start: 20030101
  8. HUMALOG [Concomitant]
     Dosage: UNK
     Dates: start: 20020101
  9. LANTUS [Concomitant]
     Dosage: UNK
     Dates: start: 20020101

REACTIONS (11)
  - ABDOMINAL DISCOMFORT [None]
  - COLITIS ULCERATIVE [None]
  - DECREASED APPETITE [None]
  - GENERAL PHYSICAL HEALTH DETERIORATION [None]
  - HEPATIC CIRRHOSIS [None]
  - HEPATIC STEATOSIS [None]
  - HYPOPHAGIA [None]
  - LIVER INJURY [None]
  - PANCREATITIS [None]
  - PANCYTOPENIA [None]
  - TYPE 1 DIABETES MELLITUS [None]
